FAERS Safety Report 14675050 (Version 1)
Quarter: 2018Q1

REPORT INFORMATION
  Report Type: Report from Study
  Country: ES (occurrence: ES)
  Receive Date: 20180323
  Receipt Date: 20180323
  Transmission Date: 20180509
  Serious: Yes (Life-Threatening, Hospitalization)
  Sender: FDA-Public Use
  Company Number: ES-TEVA-2018-ES-871077

PATIENT
  Age: 41 Year
  Sex: Male

DRUGS (6)
  1. FLUOXETINA (2331A) [Concomitant]
     Indication: BIPOLAR DISORDER
     Route: 048
     Dates: start: 20160302, end: 20160315
  2. LITIO CLORURO (1071CL) [Suspect]
     Active Substance: LITHIUM CHLORIDE
     Indication: INTENTIONAL OVERDOSE
     Route: 048
     Dates: start: 20160316, end: 20160316
  3. MIRTAZAPINA (2704A) [Concomitant]
     Indication: BIPOLAR DISORDER
     Route: 048
     Dates: start: 20160302, end: 20160315
  4. CLONAZEPAM (635A) [Concomitant]
     Active Substance: CLONAZEPAM
     Indication: BIPOLAR DISORDER
     Route: 048
     Dates: start: 20160302, end: 20160315
  5. QUETIAPINA (1136A) [Interacting]
     Active Substance: QUETIAPINE
     Indication: INTENTIONAL OVERDOSE
     Route: 048
     Dates: start: 20160316, end: 20160316
  6. LORMETAZEPAM (88A) [Concomitant]
     Indication: BIPOLAR DISORDER
     Route: 048
     Dates: start: 20160302, end: 20160315

REACTIONS (3)
  - Intentional overdose [Recovered/Resolved]
  - Drug interaction [Unknown]
  - Conduct disorder [Recovered/Resolved]

NARRATIVE: CASE EVENT DATE: 20160316
